FAERS Safety Report 6212730-X (Version None)
Quarter: 2009Q2

REPORT INFORMATION
  Report Type: 
  Country: None (occurrence: None)
  Receive Date: 20090529
  Receipt Date: 20090519
  Transmission Date: 20091009
  Serious: Yes (Hospitalization)
  Sender: FDA-Public Use
  Company Number: WAES 0905USA03331

PATIENT
  Age: 76 Year
  Sex: Female

DRUGS (8)
  1. ZETIA [Suspect]
     Indication: HYPERCHOLESTEROLAEMIA
     Dosage: 10 MG/DAILY
     Route: 048
     Dates: start: 20071226, end: 20071226
  2. AZELNIDIPINE [Concomitant]
  3. DIGOXIN [Concomitant]
  4. DIPYRIDAMOLE [Concomitant]
  5. FUROSEMIDE [Concomitant]
  6. GLIMEPIRIDE [Concomitant]
  7. OLMESARTAN MEDOXOMIL [Concomitant]
  8. SPIRONOLACTONE [Concomitant]

REACTIONS (3)
  - BACK PAIN [None]
  - CUSHING'S SYNDROME [None]
  - PLEURISY [None]
